FAERS Safety Report 4601530-X (Version None)
Quarter: 2005Q1

REPORT INFORMATION
  Report Type: 
  Country: None (occurrence: None)
  Receive Date: 20050127
  Receipt Date: 20040901
  Transmission Date: 20050727
  Serious: Yes (Hospitalization)
  Sender: FDA-Public Use
  Company Number: 200312024US

PATIENT

DRUGS (7)
  1. AMARYL [Suspect]
     Dosage: 4 MG QD PO
     Route: 048
  2. REMINYL [Suspect]
     Indication: DEMENTIA ALZHEIMER'S TYPE
     Dosage: 4 MG QD PO
     Route: 048
  3. PRILOSEC [Concomitant]
  4. ZESTRIL [Concomitant]
  5. ALLEGRA [Concomitant]
  6. VIOXX [Concomitant]
  7. UNKNOWN MEDICATION [Concomitant]

REACTIONS (1)
  - HYPOGLYCAEMIA [None]
